FAERS Safety Report 7961103-8 (Version None)
Quarter: 2011Q4

REPORT INFORMATION
  Report Type: 
  Country: None (occurrence: None)
  Receive Date: 20111207
  Receipt Date: 20111123
  Transmission Date: 20120403
  Serious: Yes (Other)
  Sender: FDA-Public Use
  Company Number: FR-MYLANLABS-2011S1024152

PATIENT
  Age: 54 Year
  Sex: Female

DRUGS (9)
  1. CYCLOPHOSPHAMIDE [Suspect]
     Indication: BREAST CANCER
     Dates: start: 20110829
  2. LEXOMIL [Concomitant]
  3. APREPITANT [Suspect]
     Indication: BREAST CANCER
     Route: 048
     Dates: start: 20110830
  4. AMITRIPTYLINE HCL [Concomitant]
  5. ZOFRAN [Concomitant]
     Dates: start: 20110829
  6. SOLU-MEDROL [Concomitant]
     Dates: start: 20110829
  7. EPIRUBICIN [Suspect]
     Indication: BREAST CANCER
     Dates: start: 20110829
  8. FLUOROURACIL [Suspect]
     Dates: start: 20110829
  9. NEXIUM [Concomitant]

REACTIONS (1)
  - HEPATITIS [None]
